FAERS Safety Report 8446619-2 (Version None)
Quarter: 2012Q2

REPORT INFORMATION
  Report Type: 
  Country: None (occurrence: None)
  Receive Date: 20120619
  Receipt Date: 20120611
  Transmission Date: 20120825
  Serious: Yes (Hospitalization)
  Sender: FDA-Public Use
  Company Number: US-BIOGENIDEC-2011BI031670

PATIENT
  Age: 48 Year
  Sex: Female

DRUGS (5)
  1. BETASERON [Concomitant]
     Dates: end: 20110101
  2. MEDICATION (NOS) [Concomitant]
  3. AVONEX [Suspect]
     Indication: MULTIPLE SCLEROSIS
     Route: 030
     Dates: start: 20000601, end: 20070101
  4. AVONEX [Suspect]
     Route: 030
     Dates: start: 20110831
  5. TOPAMAX [Concomitant]
     Indication: CONVULSION
     Dates: start: 20110101

REACTIONS (8)
  - HYPERHIDROSIS [None]
  - PARAESTHESIA [None]
  - INTRACRANIAL ANEURYSM [None]
  - DIZZINESS [None]
  - MULTIPLE SCLEROSIS RELAPSE [None]
  - BLOOD PRESSURE INCREASED [None]
  - FEELING ABNORMAL [None]
  - CHEST DISCOMFORT [None]
